FAERS Safety Report 8282926-4 (Version None)
Quarter: 2012Q2

REPORT INFORMATION
  Report Type: 
  Country: None (occurrence: None)
  Receive Date: 20120413
  Receipt Date: 20120330
  Transmission Date: 20120825
  Serious: Yes (Other)
  Sender: FDA-Public Use
  Company Number: US-ROCHE-1001295

PATIENT
  Sex: Female
  Weight: 86.26 kg

DRUGS (3)
  1. ACCUTANE [Suspect]
     Indication: ACNE
     Route: 065
     Dates: start: 19981201, end: 19990301
  2. ACCUTANE [Suspect]
     Route: 065
     Dates: start: 19991201, end: 20000301
  3. BIRTH CONTROL (UNK INGREDIENTS) [Concomitant]

REACTIONS (10)
  - PROCTITIS ULCERATIVE [None]
  - HAEMORRHOIDS [None]
  - INFLAMMATORY BOWEL DISEASE [None]
  - FATIGUE [None]
  - GASTROOESOPHAGEAL REFLUX DISEASE [None]
  - STRESS [None]
  - INTESTINAL HAEMORRHAGE [None]
  - VOMITING [None]
  - COLITIS ULCERATIVE [None]
  - INTESTINAL OBSTRUCTION [None]
